FAERS Safety Report 18785019 (Version 5)
Quarter: 2021Q2

REPORT INFORMATION
  Report Type: Report from Study
  Country: CA (occurrence: CA)
  Receive Date: 20210126
  Receipt Date: 20210503
  Transmission Date: 20210717
  Serious: Yes (Hospitalization, Other)
  Sender: FDA-Public Use
  Company Number: CA-SA-2021SA018711

PATIENT
  Age: 62 Year
  Sex: Female

DRUGS (16)
  1. CETIRIZINE [Concomitant]
     Active Substance: CETIRIZINE HYDROCHLORIDE
     Dosage: 20 MG 1/2 CO
     Route: 065
  2. POTASSIUM [Concomitant]
     Active Substance: POTASSIUM
     Dosage: UNK
  3. ATORVASTATIN [Concomitant]
     Active Substance: ATORVASTATIN
     Route: 048
  4. AMIODARONE [Concomitant]
     Active Substance: AMIODARONE
     Dosage: 200 MG, BID
     Route: 065
  5. ACETAMINOPHEN. [Concomitant]
     Active Substance: ACETAMINOPHEN
     Indication: PREMEDICATION
     Dosage: 975 MG
     Route: 048
  6. POTASSIUM [Concomitant]
     Active Substance: POTASSIUM
  7. ADVAIR HFA [Concomitant]
     Active Substance: FLUTICASONE PROPIONATE\SALMETEROL XINAFOATE
     Dosage: 250 MCG, BID
     Route: 065
  8. POTASSIUM [Concomitant]
     Active Substance: POTASSIUM
  9. COVID?19 VACCINE NOS. [Suspect]
     Active Substance: COVID-19 VACCINE NOS
     Dosage: UNK
     Route: 065
     Dates: start: 20210416
  10. ADVAIR HFA [Concomitant]
     Active Substance: FLUTICASONE PROPIONATE\SALMETEROL XINAFOATE
  11. ZOPICLONE [Concomitant]
     Active Substance: ZOPICLONE
     Dosage: 7.5 MG HS
     Route: 048
  12. POTASSIUM [Concomitant]
     Active Substance: POTASSIUM
  13. AGALSIDASE BETA [Suspect]
     Active Substance: AGALSIDASE BETA
     Indication: FABRY^S DISEASE
     Dosage: 60 MG, QOW
     Route: 041
     Dates: start: 20200113
  14. ANASTROL [Concomitant]
     Active Substance: ANASTROZOLE
     Dosage: 1 MG PO DIE
     Route: 048
  15. DILTIAZEM. [Concomitant]
     Active Substance: DILTIAZEM
     Dosage: 240 MG
     Route: 048
     Dates: end: 202101
  16. ATORVASTATIN [Concomitant]
     Active Substance: ATORVASTATIN
     Dosage: 40 MG PO DIE
     Route: 048

REACTIONS (9)
  - Heart rate increased [Unknown]
  - Dyspnoea [Not Recovered/Not Resolved]
  - Sleep disorder [Not Recovered/Not Resolved]
  - Pyrexia [Recovered/Resolved]
  - Atrial fibrillation [Unknown]
  - Sinus rhythm [Unknown]
  - Rales [Not Recovered/Not Resolved]
  - Fatigue [Not Recovered/Not Resolved]
  - Arrhythmia [Unknown]

NARRATIVE: CASE EVENT DATE: 20201231
